FAERS Safety Report 18904024 (Version 1)
Quarter: 2021Q1

REPORT INFORMATION
  Report Type: Spontaneous
  Country: US (occurrence: US)
  Receive Date: 20210217
  Receipt Date: 20210217
  Transmission Date: 20210420
  Serious: Yes (Other)
  Sender: FDA-Public Use
  Company Number: US-GLAXOSMITHKLINE-US2021GSK026054

PATIENT
  Sex: Female

DRUGS (6)
  1. RANITIDINE. [Suspect]
     Active Substance: RANITIDINE
     Indication: NEOPLASM
     Dosage: 150 MG, QD
     Route: 065
     Dates: start: 198101, end: 199101
  2. ZANTAC [Suspect]
     Active Substance: RANITIDINE HYDROCHLORIDE
     Indication: NEOPLASM
     Dosage: 150 MG, QD
     Route: 065
     Dates: start: 198101, end: 199101
  3. RANITIDINE CAPSULE [Suspect]
     Active Substance: RANITIDINE
     Indication: NEOPLASM
     Dosage: 150 MG, QD
     Route: 065
     Dates: start: 198101, end: 199101
  4. ZANTAC [Suspect]
     Active Substance: RANITIDINE HYDROCHLORIDE
     Indication: NEOPLASM
     Dosage: 150 MG, QD
     Route: 065
     Dates: start: 198101, end: 199101
  5. RANITIDINE. [Suspect]
     Active Substance: RANITIDINE
     Indication: NEOPLASM
     Dosage: 150 MG, QD
     Route: 065
     Dates: start: 198101, end: 199101
  6. RANITIDINE. [Suspect]
     Active Substance: RANITIDINE
     Indication: NEOPLASM
     Dosage: 150 MG, QD
     Route: 065
     Dates: start: 198101, end: 199101

REACTIONS (2)
  - Throat cancer [Unknown]
  - Nasal cavity cancer [Unknown]
